FAERS Safety Report 16249813 (Version 1)
Quarter: 2019Q2

REPORT INFORMATION
  Report Type: Spontaneous
  Country: US (occurrence: US)
  Receive Date: 20190429
  Receipt Date: 20190429
  Transmission Date: 20190711
  Serious: No
  Sender: FDA-Public Use
  Company Number: US-MYLANLABS-2019M1033931

PATIENT
  Sex: Female
  Weight: 67 kg

DRUGS (2)
  1. TIOTIXENE [Suspect]
     Active Substance: THIOTHIXENE
     Dosage: 4 MILLIGRAM, UNK
  2. TIOTIXENE [Suspect]
     Active Substance: THIOTHIXENE
     Indication: POST-TRAUMATIC STRESS DISORDER
     Dosage: 6 MILLIGRAM, UNK

REACTIONS (2)
  - Withdrawal syndrome [Unknown]
  - Influenza like illness [Unknown]
